FAERS Safety Report 13365627 (Version 1)
Quarter: 2017Q1

REPORT INFORMATION
  Report Type: Spontaneous
  Country: US (occurrence: US)
  Receive Date: 20170323
  Receipt Date: 20170323
  Transmission Date: 20170429
  Serious: Yes (Hospitalization)
  Sender: FDA-Public Use
  Company Number: US-WARNER CHILCOTT-2016-001328

PATIENT
  Age: 73 Year
  Sex: Female

DRUGS (16)
  1. BACLOFEN. [Concomitant]
     Active Substance: BACLOFEN
     Indication: MUSCLE RELAXANT THERAPY
  2. COLACE [Concomitant]
     Active Substance: DOCUSATE SODIUM
     Indication: CONSTIPATION
     Dosage: 200 MG, UNKNOWN
     Route: 048
  3. REPLENS [Concomitant]
     Active Substance: CARBOMER 934\GLYCERIN\METHYLPARABEN\PROPYLPARABEN\SODIUM HYDROXIDE
     Indication: VULVAL OEDEMA
     Dosage: USES ON NIGHTS SHE DOESN^T USE ESTRACE
     Route: 067
     Dates: start: 2012
  4. LISINOPRIL. [Concomitant]
     Active Substance: LISINOPRIL
     Dosage: 5 MG, UNKNOWN
     Route: 048
  5. SIMVASTATIN. [Concomitant]
     Active Substance: SIMVASTATIN
     Dosage: 20 MG, UNKNOWN
     Route: 048
  6. METOPROLOL. [Concomitant]
     Active Substance: METOPROLOL
     Dosage: 25 MG, UNKNOWN
     Route: 048
  7. ESTRACE [Suspect]
     Active Substance: ESTRADIOL
     Indication: GENITAL TRACT INFLAMMATION
  8. ESTRACE [Suspect]
     Active Substance: ESTRADIOL
     Indication: VULVAL OEDEMA
     Dosage: 1 MG, EVERY OTHER NIGHT
     Route: 067
     Dates: start: 2014
  9. VITAMIN D3 [Concomitant]
     Active Substance: CHOLECALCIFEROL
     Dosage: 2000 IU, UNKNOWN
     Route: 048
  10. LORAZEPAM. [Concomitant]
     Active Substance: LORAZEPAM
     Indication: MIGRAINE
     Dosage: .5 MG, UNKNOWN
     Route: 048
  11. LORAZEPAM. [Concomitant]
     Active Substance: LORAZEPAM
     Indication: FEELING OF RELAXATION
  12. NORTRIPTYLINE [Concomitant]
     Active Substance: NORTRIPTYLINE
     Indication: MIGRAINE
     Dosage: 25 MG, UNKNOWN
     Route: 048
  13. PLAVIX [Concomitant]
     Active Substance: CLOPIDOGREL BISULFATE
     Dosage: 75 MG, UNKNOWN
     Route: 048
  14. METHIMAZOLE. [Concomitant]
     Active Substance: METHIMAZOLE
     Indication: THYROID DISORDER
     Dosage: 5 MG, UNKNOWN
     Route: 048
  15. BACLOFEN. [Concomitant]
     Active Substance: BACLOFEN
     Indication: MIGRAINE
     Dosage: 20 MG, UNKNOWN
     Route: 048
     Dates: start: 201509
  16. MILK OF MAGNESIA [Concomitant]
     Active Substance: MAGNESIUM HYDROXIDE
     Indication: CONSTIPATION
     Dosage: UNK UNK, UNKNOWN
     Route: 048

REACTIONS (2)
  - Headache [Not Recovered/Not Resolved]
  - Product use issue [Unknown]

NARRATIVE: CASE EVENT DATE: 2014
